FAERS Safety Report 4465905-4 (Version None)
Quarter: 2004Q3

REPORT INFORMATION
  Report Type: 
  Country: None (occurrence: None)
  Receive Date: 20040929
  Receipt Date: 20040909
  Transmission Date: 20050211
  Serious: Yes (Hospitalization, Disabling)
  Sender: FDA-Public Use
  Company Number: USA040977777

PATIENT
  Age: 58 Year
  Sex: Female
  Weight: 74 kg

DRUGS (12)
  1. ZYPREXA [Suspect]
     Indication: BIPOLAR DISORDER
     Dosage: 5 MG AT BEDTIME
  2. CLONAZEPAM [Concomitant]
  3. DEPAKOTE [Concomitant]
  4. PRAVACHOL [Concomitant]
  5. RANITIDINE [Concomitant]
  6. LEVOTHYROXINE SODIUM [Concomitant]
  7. BENADRYL [Concomitant]
  8. GEMFIBROZIL [Concomitant]
  9. LISINOPRIL [Concomitant]
  10. DARVOCET-N 100 [Concomitant]
  11. AGGRENOX [Concomitant]
  12. COREG [Concomitant]

REACTIONS (5)
  - BODY HEIGHT DECREASED [None]
  - IMPAIRED WORK ABILITY [None]
  - PSYCHOMOTOR HYPERACTIVITY [None]
  - TRANSIENT ISCHAEMIC ATTACK [None]
  - WEIGHT INCREASED [None]
